FAERS Safety Report 16247406 (Version 2)
Quarter: 2019Q2

REPORT INFORMATION
  Report Type: Spontaneous
  Country: US (occurrence: US)
  Receive Date: 20190428
  Receipt Date: 20190508
  Transmission Date: 20190711
  Serious: No
  Sender: FDA-Public Use
  Company Number: US-BIOGEN-2019BI00730411

PATIENT
  Sex: Female

DRUGS (1)
  1. TECFIDERA [Suspect]
     Active Substance: DIMETHYL FUMARATE
     Indication: MULTIPLE SCLEROSIS
     Route: 048
     Dates: start: 20130708, end: 20130809

REACTIONS (6)
  - Anxiety [Not Recovered/Not Resolved]
  - Scoliosis [Not Recovered/Not Resolved]
  - Drug intolerance [Recovered/Resolved]
  - Stress [Unknown]
  - Osteoporosis [Not Recovered/Not Resolved]
  - Disorientation [Recovered/Resolved]

NARRATIVE: CASE EVENT DATE: 2013
